FAERS Safety Report 12215604 (Version 1)
Quarter: 2016Q1

REPORT INFORMATION
  Report Type: Spontaneous
  Country: US (occurrence: US)
  Receive Date: 20160328
  Receipt Date: 20160328
  Transmission Date: 20160526
  Serious: Yes (Other)
  Sender: FDA-Public Use
  Company Number: US-PFIZER INC-2016170238

PATIENT
  Age: 56 Year
  Sex: Female
  Weight: 71.21 kg

DRUGS (7)
  1. CELEBREX [Suspect]
     Active Substance: CELECOXIB
     Indication: PAIN
     Dosage: 200 MG, 1X/DAY (AT BEDTIME)
     Route: 048
     Dates: start: 2000
  2. VICODIN [Suspect]
     Active Substance: ACETAMINOPHEN\HYDROCODONE BITARTRATE
     Indication: PAIN
     Dosage: UNK (HYDROCODONE BITARTRATE 5MG, ACETAMINOPHEN 325 MG)
     Route: 048
     Dates: start: 201503
  3. OPANA ER [Suspect]
     Active Substance: OXYMORPHONE HYDROCHLORIDE
     Indication: PAIN
     Dosage: 5 MG, 1X/DAY (AS REQUIRED)
     Route: 048
     Dates: start: 200810
  4. CYCLOBENZAPRINE HYDROCHLORIDE. [Suspect]
     Active Substance: CYCLOBENZAPRINE HYDROCHLORIDE
     Indication: PAIN
     Dosage: 10 MG, 3X/DAY
     Route: 048
     Dates: start: 200503
  5. GABAPENTIN. [Concomitant]
     Active Substance: GABAPENTIN
     Indication: NEURALGIA
     Dosage: 400 MG, 2X/DAY (300 MG AND 100 MG)
     Dates: start: 201412
  6. SIMVASTATIN. [Concomitant]
     Active Substance: SIMVASTATIN
     Indication: BLOOD CHOLESTEROL
     Dosage: 40 MG, 1X/DAY
     Dates: start: 2001
  7. BLACK COHOSH [Concomitant]
     Active Substance: BLACK COHOSH
     Indication: HOT FLUSH
     Dosage: 1080 MG, 1X/DAY
     Route: 048

REACTIONS (12)
  - Euphoric mood [Unknown]
  - Pain [Unknown]
  - Rheumatoid arthritis [Unknown]
  - Wrong patient received medication [Unknown]
  - Intentional product misuse [Unknown]
  - Gait disturbance [Unknown]
  - Logorrhoea [Unknown]
  - Speech disorder [Unknown]
  - Insomnia [Unknown]
  - Drug dose omission [Unknown]
  - Feeling abnormal [Unknown]
  - Extra dose administered [Unknown]

NARRATIVE: CASE EVENT DATE: 20151207
